FAERS Safety Report 7148960-2 (Version None)
Quarter: 2010Q4

REPORT INFORMATION
  Report Type: 
  Country: None (occurrence: None)
  Receive Date: 20101209
  Receipt Date: 20101130
  Transmission Date: 20110411
  Serious: Yes (Death, Hospitalization)
  Sender: FDA-Public Use
  Company Number: B0688152A

PATIENT
  Age: 68 Year
  Sex: Male

DRUGS (8)
  1. ARTIST [Suspect]
     Indication: CARDIAC FAILURE
     Route: 048
  2. LUPRAC [Suspect]
     Indication: CARDIAC FAILURE
     Route: 048
  3. LASIX [Suspect]
     Route: 048
  4. SALOBEL [Suspect]
     Route: 048
  5. DIOVAN [Concomitant]
  6. WARFARIN SODIUM [Concomitant]
  7. DIGOXIN [Concomitant]
  8. MUCOSTA [Concomitant]

REACTIONS (14)
  - CARDIOMEGALY [None]
  - CHEST X-RAY ABNORMAL [None]
  - DEATH [None]
  - DERMATITIS EXFOLIATIVE [None]
  - DRUG ERUPTION [None]
  - DYSPNOEA [None]
  - ERYTHEMA [None]
  - GENERALISED OEDEMA [None]
  - LYMPHOCYTIC INFILTRATION [None]
  - PULMONARY CONGESTION [None]
  - PYREXIA [None]
  - RASH GENERALISED [None]
  - RASH PUSTULAR [None]
  - SCAB [None]
